FAERS Safety Report 12625713 (Version 1)
Quarter: 2016Q3

REPORT INFORMATION
  Report Type: Spontaneous
  Country: US (occurrence: None)
  Receive Date: 20160804
  Receipt Date: 20160804
  Transmission Date: 20161109
  Serious: Yes (Other)
  Sender: FDA-Public Use
  Company Number: None

PATIENT
  Age: 9 Year
  Sex: Male
  Weight: 30.84 kg

DRUGS (1)
  1. GUANFACINE HCL [Suspect]
     Active Substance: GUANFACINE HYDROCHLORIDE
     Indication: ATTENTION DEFICIT/HYPERACTIVITY DISORDER
     Route: 048
     Dates: start: 20150105, end: 20150128

REACTIONS (4)
  - Aggression [None]
  - Psychomotor hyperactivity [None]
  - Defiant behaviour [None]
  - Product substitution issue [None]

NARRATIVE: CASE EVENT DATE: 20150105
